FAERS Safety Report 9978117 (Version 1)
Quarter: 2014Q1

REPORT INFORMATION
  Report Type: Spontaneous
  Country: US (occurrence: US)
  Receive Date: 20140306
  Receipt Date: 20140306
  Transmission Date: 20141002
  Serious: No
  Sender: FDA-Public Use
  Company Number: US-PFIZER INC-2014057677

PATIENT
  Age: 62 Year
  Sex: Female
  Weight: 58.96 kg

DRUGS (1)
  1. ADVIL [Suspect]
     Indication: ARTHRITIS
     Dosage: UNK, AS NEEDED
     Route: 048
     Dates: start: 201402

REACTIONS (4)
  - Off label use [Unknown]
  - Expired drug administered [Unknown]
  - Malaise [Unknown]
  - Nausea [Unknown]
